FAERS Safety Report 6396166-7 (Version None)
Quarter: 2009Q4

REPORT INFORMATION
  Report Type: 
  Country: None (occurrence: None)
  Receive Date: 20091009
  Receipt Date: 20091001
  Transmission Date: 20100525
  Serious: Yes (Other)
  Sender: FDA-Public Use
  Company Number: GB-B.I. PHARMACEUTICALS,INC./RIDGEFIELD-2009-UK-00854UK

PATIENT
  Sex: Female

DRUGS (7)
  1. PRAMIPEXOLE [Suspect]
     Indication: PARKINSON'S DISEASE
     Dosage: 2100 MCG
     Route: 048
     Dates: start: 20080401
  2. MADOPAR [Concomitant]
  3. SIMVASTATIN [Concomitant]
  4. ASPIRIN [Concomitant]
  5. RISEDRONATE SODIUM [Concomitant]
  6. OMEPPRAZOLE [Concomitant]
  7. IRON [Concomitant]

REACTIONS (1)
  - VISUAL FIELD DEFECT [None]
